FAERS Safety Report 18103269 (Version 1)
Quarter: 2020Q3

REPORT INFORMATION
  Report Type: Spontaneous
  Country: BR (occurrence: BR)
  Receive Date: 20200803
  Receipt Date: 20200803
  Transmission Date: 20201103
  Serious: Yes (Other)
  Sender: FDA-Public Use
  Company Number: BR-JNJFOC-20200739768

PATIENT
  Age: 13 Year
  Sex: Male

DRUGS (1)
  1. REMICADE [Suspect]
     Active Substance: INFLIXIMAB
     Indication: UVEITIS
     Route: 042

REACTIONS (4)
  - Blindness [Unknown]
  - Product use in unapproved indication [Unknown]
  - Arthralgia [Unknown]
  - Off label use [Unknown]
